FAERS Safety Report 21786230 (Version 1)
Quarter: 2022Q4

REPORT INFORMATION
  Report Type: Spontaneous
  Country: NL (occurrence: NL)
  Receive Date: 20221228
  Receipt Date: 20221228
  Transmission Date: 20230113
  Serious: Yes (Life-Threatening, Other)
  Sender: FDA-Public Use
  Company Number: NL-LRB-00856125

PATIENT
  Sex: Male
  Weight: 105 kg

DRUGS (2)
  1. CLOZAPINE [Suspect]
     Active Substance: CLOZAPINE
     Indication: Abnormal behaviour
     Dosage: 8 MILLILITER, ONCE A DAY,1X DAAGS 8ML
     Route: 065
     Dates: start: 20220301
  2. MEDROXYPROGESTERONE [Suspect]
     Active Substance: MEDROXYPROGESTERONE
     Indication: Contraception
     Dosage: 1 DOSAGE FORM,1/12WEKEN
     Route: 065
     Dates: start: 20200101

REACTIONS (1)
  - Pulmonary embolism [Recovered/Resolved]
